FAERS Safety Report 24218733 (Version 1)
Quarter: 2024Q3

REPORT INFORMATION
  Report Type: Spontaneous
  Country: US (occurrence: None)
  Receive Date: 20240815
  Receipt Date: 20240815
  Transmission Date: 20241017
  Serious: Yes (Other)
  Sender: Public
  Company Number: None

PATIENT
  Age: 36 Year
  Sex: Female
  Weight: 56.25 kg

DRUGS (2)
  1. METRONIDAZOLE [Suspect]
     Active Substance: METRONIDAZOLE
     Indication: Bacterial vaginosis
     Dosage: 30 TABLETS 3 TIMES A DAY ORAL
     Route: 048
     Dates: start: 20240726, end: 20240730
  2. PROBIOTICS NOS [Concomitant]
     Active Substance: PROBIOTICS NOS

REACTIONS (8)
  - Head discomfort [None]
  - Paraesthesia [None]
  - Vision blurred [None]
  - Confusional state [None]
  - Gait inability [None]
  - Dizziness [None]
  - Nausea [None]
  - Neck pain [None]

NARRATIVE: CASE EVENT DATE: 20240726
